FAERS Safety Report 23055344 (Version 4)
Quarter: 2025Q1

REPORT INFORMATION
  Report Type: Report from Study
  Country: US (occurrence: US)
  Receive Date: 20231011
  Receipt Date: 20250331
  Transmission Date: 20250409
  Serious: Yes (Hospitalization, Other)
  Sender: PARATEK PHARMACEUTICALS
  Company Number: US-PARATEK PHARMACEUTICALS, INC.-2023PTK00375

PATIENT
  Sex: Female
  Weight: 49.887 kg

DRUGS (46)
  1. NUZYRA [Suspect]
     Active Substance: OMADACYCLINE
     Indication: Mycobacterium avium complex infection
     Dosage: 150 MG, 1X/DAY, EVERY MORNING
     Route: 048
     Dates: start: 202307, end: 2023
  2. NUZYRA [Suspect]
     Active Substance: OMADACYCLINE
     Dosage: 150 MG, 1X/DAY, EVERY MORNING
     Route: 048
     Dates: start: 2023, end: 20230914
  3. NUZYRA [Suspect]
     Active Substance: OMADACYCLINE
     Dosage: 150 MG, 1X/DAY, EVERY MORNING
     Route: 048
     Dates: start: 20230917
  4. NUZYRA [Suspect]
     Active Substance: OMADACYCLINE
     Dosage: 150 MG, 1X/DAY, EVERY MORNING
     Route: 048
  5. NUZYRA [Suspect]
     Active Substance: OMADACYCLINE
     Dosage: 150 MG, 1X/DAY EVERY MORNING
  6. NUZYRA [Suspect]
     Active Substance: OMADACYCLINE
     Dosage: 150 MG, 1X/DAY EVERY MORNING
  7. CRESTOR [Concomitant]
     Active Substance: ROSUVASTATIN CALCIUM
  8. PROBIOTICS NOS [Concomitant]
     Active Substance: PROBIOTICS NOS
  9. ZOFRAN [Concomitant]
     Active Substance: ONDANSETRON HYDROCHLORIDE
  10. PEPCID [Concomitant]
     Active Substance: FAMOTIDINE
  11. DALIRESP [Concomitant]
     Active Substance: ROFLUMILAST
  12. PROTONIX [Concomitant]
     Active Substance: PANTOPRAZOLE SODIUM
  13. AZITHROMYCIN [Concomitant]
     Active Substance: AZITHROMYCIN
  14. ARIKAYCE [Concomitant]
     Active Substance: AMIKACIN
  15. ALBUTEROL [Concomitant]
     Active Substance: ALBUTEROL
  16. AMIKACIN [Concomitant]
     Active Substance: AMIKACIN
  17. BENZONATATE [Concomitant]
     Active Substance: BENZONATATE
  18. BUPROPION [Concomitant]
     Active Substance: BUPROPION
  19. CELECOXIB [Concomitant]
     Active Substance: CELECOXIB
  20. FAMOTIDINE [Concomitant]
     Active Substance: FAMOTIDINE
  21. FUROSEMIDE [Concomitant]
     Active Substance: FUROSEMIDE
  22. GUAIFENESIN [Concomitant]
     Active Substance: GUAIFENESIN
  23. HYDROCODONE [Concomitant]
     Active Substance: HYDROCODONE
  24. HYDRALAZINE [Concomitant]
     Active Substance: HYDRALAZINE HYDROCHLORIDE
  25. ALBUTEROL\IPRATROPIUM [Concomitant]
     Active Substance: ALBUTEROL\IPRATROPIUM
  26. PROBIOTICS NOS [Concomitant]
     Active Substance: PROBIOTICS NOS
  27. MUPIROCIN [Concomitant]
     Active Substance: MUPIROCIN
  28. NARCAN [Concomitant]
     Active Substance: NALOXONE HYDROCHLORIDE
  29. NYSTATIN [Concomitant]
     Active Substance: NYSTATIN
     Route: 048
  30. OLMESARTAN [Concomitant]
     Active Substance: OLMESARTAN
  31. ONDANSETRON [Concomitant]
     Active Substance: ONDANSETRON
  32. OXYBUTYNIN [Concomitant]
     Active Substance: OXYBUTYNIN
  33. PANTOPRAZOLE [Concomitant]
     Active Substance: PANTOPRAZOLE
  34. PERIDEX [CHLORHEXIDINE GLUCONATE] [Concomitant]
  35. POTASSIUM CHLORIDE [Concomitant]
     Active Substance: POTASSIUM CHLORIDE
  36. PRIMIDONE [Concomitant]
     Active Substance: PRIMIDONE
  37. PROMETHAZINE [Concomitant]
     Active Substance: PROMETHAZINE HYDROCHLORIDE
  38. CODEINE\PROMETHAZINE [Concomitant]
     Active Substance: CODEINE\PROMETHAZINE
  39. PROPYLTHIOURACIL [Concomitant]
     Active Substance: PROPYLTHIOURACIL
  40. ROFLUMILAST [Concomitant]
     Active Substance: ROFLUMILAST
  41. ROSUVASTATIN [Concomitant]
     Active Substance: ROSUVASTATIN
  42. SPIRONOLACTONE [Concomitant]
     Active Substance: SPIRONOLACTONE
  43. STIOLTO RESPIMAT [Concomitant]
     Active Substance: OLODATEROL HYDROCHLORIDE\TIOTROPIUM BROMIDE MONOHYDRATE
  44. TEMAZEPAM [Concomitant]
     Active Substance: TEMAZEPAM
  45. TRIAMCINOLONE [Concomitant]
     Active Substance: TRIAMCINOLONE
     Route: 061
  46. VORICONAZOLE [Concomitant]
     Active Substance: VORICONAZOLE

REACTIONS (10)
  - Loss of consciousness [Recovered/Resolved]
  - Oxygen saturation decreased [Recovering/Resolving]
  - Thyroid disorder [Unknown]
  - Herpes zoster [Unknown]
  - Foot fracture [Unknown]
  - Sternal fracture [Unknown]
  - Anaemia [Unknown]
  - Diarrhoea [Unknown]
  - Off label use [Not Recovered/Not Resolved]
  - Product dose omission issue [Recovered/Resolved]

NARRATIVE: CASE EVENT DATE: 20230101
